FAERS Safety Report 10628804 (Version 1)
Quarter: 2014Q4

REPORT INFORMATION
  Report Type: Spontaneous
  Country: US (occurrence: US)
  Receive Date: 20141205
  Receipt Date: 20141205
  Transmission Date: 20150529
  Serious: No
  Sender: FDA-Public Use
  Company Number: US-BRISTOL-MYERS SQUIBB COMPANY-21351812

PATIENT
  Age: 90 Year
  Sex: Female
  Weight: 66.21 kg

DRUGS (4)
  1. ELIQUIS [Suspect]
     Active Substance: APIXABAN
  2. COUMADIN [Suspect]
     Active Substance: WARFARIN SODIUM
  3. PREDNISONE. [Suspect]
     Active Substance: PREDNISONE
  4. TOPROL XL [Suspect]
     Active Substance: METOPROLOL SUCCINATE

REACTIONS (5)
  - Nail bed bleeding [Recovered/Resolved]
  - Hypoacusis [Unknown]
  - Fall [Unknown]
  - Weight increased [Recovered/Resolved]
  - Alopecia [Unknown]
